FAERS Safety Report 18305960 (Version 24)
Quarter: 2022Q3

REPORT INFORMATION
  Report Type: Report from Study
  Country: US (occurrence: US)
  Receive Date: 20200923
  Receipt Date: 20220926
  Transmission Date: 20221026
  Serious: Yes (Hospitalization, Other)
  Sender: FDA-Public Use
  Company Number: US-SHIRE-US202027673

PATIENT
  Age: 72 Year
  Sex: Female
  Weight: 85 kg

DRUGS (70)
  1. HUMAN IMMUNOGLOBULIN G [Suspect]
     Active Substance: HUMAN IMMUNOGLOBULIN G
     Indication: Immunodeficiency
     Dosage: 20 GRAM, Q4WEEKS
     Route: 042
     Dates: start: 20161021
  2. HUMAN IMMUNOGLOBULIN G [Suspect]
     Active Substance: HUMAN IMMUNOGLOBULIN G
     Indication: Psoriatic arthropathy
     Dosage: 10 GRAM, Q2WEEKS
     Route: 058
     Dates: start: 20161021
  3. HUMAN IMMUNOGLOBULIN G [Suspect]
     Active Substance: HUMAN IMMUNOGLOBULIN G
     Dosage: 10 GRAM, Q2WEEKS
     Route: 058
     Dates: start: 20201028
  4. ZYRTEC [Suspect]
     Active Substance: CETIRIZINE HYDROCHLORIDE
     Indication: Product used for unknown indication
     Dosage: UNK
     Route: 065
  5. ZETIA [Concomitant]
     Active Substance: EZETIMIBE
     Route: 065
  6. PREDNISONE [Concomitant]
     Active Substance: PREDNISONE
     Route: 065
  7. ANUSOL-HC [HYDROCORTISONE ACETATE] [Concomitant]
     Route: 065
  8. CALTRATE + D PLUS [Concomitant]
     Route: 065
  9. ACETAMINOPHEN [Concomitant]
     Active Substance: ACETAMINOPHEN
     Indication: Product used for unknown indication
     Route: 065
  10. LEVOTHYROXINE SODIUM [Concomitant]
     Active Substance: LEVOTHYROXINE SODIUM
     Dosage: UNK
     Route: 065
  11. OXYGEN [Concomitant]
     Active Substance: OXYGEN
     Route: 065
  12. DIPHENHYDRAMINE [Concomitant]
     Active Substance: DIPHENHYDRAMINE
     Route: 065
  13. SODIUM CHLORIDE [Concomitant]
     Active Substance: SODIUM CHLORIDE
     Dosage: UNK
     Route: 065
  14. IRON [Concomitant]
     Active Substance: IRON
     Route: 065
  15. EPINEPHRINE [Concomitant]
     Active Substance: EPINEPHRINE
     Route: 065
  16. VITAMIN D3 [Concomitant]
     Active Substance: CHOLECALCIFEROL
     Route: 065
  17. PROAIR HFA [Concomitant]
     Active Substance: ALBUTEROL SULFATE
     Route: 065
  18. XARELTO [Concomitant]
     Active Substance: RIVAROXABAN
     Route: 065
  19. PANTOPRAZOLE [Concomitant]
     Active Substance: PANTOPRAZOLE
     Route: 065
  20. FLONASE [Concomitant]
     Active Substance: FLUTICASONE PROPIONATE
     Route: 065
  21. HYOSCYAMINE [Concomitant]
     Active Substance: HYOSCYAMINE
     Route: 065
  22. CEPHALEXIN [Concomitant]
     Active Substance: CEPHALEXIN
     Route: 065
  23. METHOTREXATE [Concomitant]
     Active Substance: METHOTREXATE
     Route: 065
  24. RIDAURA [Concomitant]
     Active Substance: AURANOFIN
     Route: 065
  25. IMURAN [Concomitant]
     Active Substance: AZATHIOPRINE
     Route: 065
  26. PROCHLORPERAZINE EDISYLATE [Concomitant]
     Active Substance: PROCHLORPERAZINE EDISYLATE
     Route: 065
  27. NAPROSYN [Concomitant]
     Active Substance: NAPROXEN
     Route: 065
  28. KALE [Concomitant]
     Active Substance: KALE
     Route: 065
  29. FORTEO [Concomitant]
     Active Substance: TERIPARATIDE
     Route: 065
  30. ORENCIA [Concomitant]
     Active Substance: ABATACEPT
     Route: 065
  31. FLAGYL [Concomitant]
     Active Substance: METRONIDAZOLE\METRONIDAZOLE HYDROCHLORIDE
     Route: 065
  32. PREMARIN [Concomitant]
     Active Substance: ESTROGENS, CONJUGATED
     Route: 065
  33. XELJANZ [Concomitant]
     Active Substance: TOFACITINIB CITRATE
     Route: 065
  34. BIAXIN [Concomitant]
     Active Substance: CLARITHROMYCIN
     Route: 065
  35. ARAVA [Concomitant]
     Active Substance: LEFLUNOMIDE
     Route: 065
  36. MORPHINE [Concomitant]
     Active Substance: MORPHINE
     Route: 065
  37. LEXAPRO [Concomitant]
     Active Substance: ESCITALOPRAM OXALATE
     Route: 065
  38. PENICILLIN [Concomitant]
     Active Substance: PENICILLIN
     Route: 065
  39. TETRACYCLINE [Concomitant]
     Active Substance: TETRACYCLINE
     Route: 065
  40. CLARITIN-D NOS [Concomitant]
     Active Substance: LORATADINE\PSEUDOEPHEDRINE SULFATE
     Route: 065
  41. MIRALAX [Concomitant]
     Active Substance: POLYETHYLENE GLYCOL 3350
     Route: 065
  42. AMITRIPTYLINE [Concomitant]
     Active Substance: AMITRIPTYLINE
     Route: 065
  43. CIPROFLOXACIN [Concomitant]
     Active Substance: CIPROFLOXACIN
     Route: 065
  44. ATENOLOL [Concomitant]
     Active Substance: ATENOLOL
     Route: 065
  45. ALOE VERA [ALOE VERA LEAF] [Concomitant]
     Route: 065
  46. BACTRIM [Concomitant]
     Active Substance: SULFAMETHOXAZOLE\TRIMETHOPRIM
     Route: 065
  47. RITUXAN [Concomitant]
     Active Substance: RITUXIMAB
     Route: 065
  48. ACTEMRA [Concomitant]
     Active Substance: TOCILIZUMAB
     Route: 065
  49. ASPIRIN [Concomitant]
     Active Substance: ASPIRIN
     Route: 065
  50. DOXYCYCLINE [Concomitant]
     Active Substance: DOXYCYCLINE
     Route: 065
  51. SIMPONI [Concomitant]
     Active Substance: GOLIMUMAB
     Route: 065
  52. LIDOCAINE [Concomitant]
     Active Substance: LIDOCAINE
     Route: 065
  53. LMX [Concomitant]
     Route: 065
  54. Omega [Concomitant]
     Route: 065
  55. ULTIMATE [Concomitant]
     Active Substance: CHLOROXYLENOL
     Route: 065
  56. FISH OIL [Concomitant]
     Active Substance: FISH OIL
     Route: 065
  57. MINERALS\VITAMINS [Concomitant]
     Active Substance: MINERALS\VITAMINS
     Route: 065
  58. Caltrate d3 [Concomitant]
     Route: 065
  59. MINERALS [Concomitant]
     Active Substance: MINERALS
     Route: 065
  60. LISINOPRIL [Concomitant]
     Active Substance: LISINOPRIL
     Dosage: UNK
  61. COLACE [Concomitant]
     Active Substance: DOCUSATE SODIUM
  62. METOPROLOL SUCCINATE [Concomitant]
     Active Substance: METOPROLOL SUCCINATE
  63. AMLODIPINE BESYLATE [Concomitant]
     Active Substance: AMLODIPINE BESYLATE
  64. FUROSEMIDE [Concomitant]
     Active Substance: FUROSEMIDE
  65. MOTEGRITY [Concomitant]
     Active Substance: PRUCALOPRIDE SUCCINATE
  66. HYOSCYAMINE SULFATE [Concomitant]
     Active Substance: HYOSCYAMINE SULFATE
  67. PENICILLIN G POTASSIUM [Concomitant]
     Active Substance: PENICILLIN G POTASSIUM
     Route: 065
  68. CLINDAMYCIN [Concomitant]
     Active Substance: CLINDAMYCIN
     Route: 065
  69. FLUTICASONE PROPIONATE [Concomitant]
     Active Substance: FLUTICASONE PROPIONATE
     Route: 065
  70. PANTOPRAZOLE SODIUM [Concomitant]
     Active Substance: PANTOPRAZOLE SODIUM

REACTIONS (48)
  - Malignant hypertension [Unknown]
  - Hospitalisation [Unknown]
  - Carpal tunnel syndrome [Unknown]
  - Chronic kidney disease [Unknown]
  - Hypothermia [Unknown]
  - Impaired gastric emptying [Unknown]
  - Confusional state [Unknown]
  - Feeling abnormal [Unknown]
  - Speech disorder [Unknown]
  - Poor venous access [Unknown]
  - Throat irritation [Unknown]
  - Gastrointestinal sounds abnormal [Unknown]
  - Systolic hypertension [Unknown]
  - Stress [Unknown]
  - Paranasal sinus discomfort [Unknown]
  - Dyspnoea [Unknown]
  - Arthritis [Unknown]
  - Pylorospasm [Unknown]
  - Vitamin D deficiency [Unknown]
  - Sinus disorder [Unknown]
  - Infusion site mass [Unknown]
  - Somnolence [Unknown]
  - Infusion site bruising [Unknown]
  - Asthenia [Unknown]
  - Sinusitis [Unknown]
  - Bronchitis [Unknown]
  - Multiple allergies [Unknown]
  - Blood glucose decreased [Unknown]
  - Vein disorder [Unknown]
  - Joint injury [Unknown]
  - Infusion related reaction [Unknown]
  - Aphasia [Unknown]
  - Pain [Unknown]
  - Abdominal distension [Unknown]
  - Infusion site erythema [Unknown]
  - Erythema [Unknown]
  - Chest pain [Unknown]
  - Abdominal pain upper [Unknown]
  - Cough [Unknown]
  - Pyrexia [Unknown]
  - Diarrhoea [Unknown]
  - Dizziness [Unknown]
  - Nausea [Unknown]
  - Fatigue [Unknown]
  - Blood pressure increased [Unknown]
  - Headache [Unknown]
  - Injection site erythema [Unknown]
  - Wrong product administered [Unknown]

NARRATIVE: CASE EVENT DATE: 20201229
